FAERS Safety Report 7502262-0 (Version None)
Quarter: 2011Q2

REPORT INFORMATION
  Report Type: 
  Country: None (occurrence: None)
  Receive Date: 20110525
  Receipt Date: 20090606
  Transmission Date: 20111010
  Serious: Yes (Death, Other)
  Sender: FDA-Public Use
  Company Number: US-BAYER-200923283NA

PATIENT
  Age: 62 Year
  Sex: Female
  Weight: 61 kg

DRUGS (17)
  1. HEPARIN [Concomitant]
     Dosage: 1000 UNITS
     Route: 042
     Dates: start: 20060112, end: 20060112
  2. FRESH FROZEN PLASMA [Concomitant]
     Dosage: 1 UNIT
     Route: 042
     Dates: start: 20060112
  3. HEPARIN [Concomitant]
     Dosage: 30,000 UNITS
     Route: 042
     Dates: start: 20060116, end: 20060116
  4. LASIX [Concomitant]
     Dosage: 20MG
     Route: 042
     Dates: start: 20060116, end: 20060116
  5. LASIX [Concomitant]
     Dosage: 20MG DAILY
     Route: 048
  6. VANCOMYCIN [Concomitant]
     Dosage: 500MG
     Route: 042
     Dates: start: 20060116, end: 20060116
  7. ZINACEF [Concomitant]
     Dosage: 1.5GMS
     Route: 042
     Dates: start: 20060116, end: 20060116
  8. ZINACEF [Concomitant]
     Dosage: 1.5 GRAMS
     Route: 042
     Dates: start: 20060112, end: 20060112
  9. TRASYLOL [Suspect]
     Indication: CORONARY ARTERY BYPASS
     Dosage: 2 MILLION KIU PUMP PRIME DOSE,199ML
     Route: 042
     Dates: start: 20060116, end: 20060116
  10. RED BLOOD CELLS [Concomitant]
     Dosage: 3 UNITS
     Route: 042
     Dates: start: 20060112
  11. TRASYLOL [Suspect]
     Dosage: UNK
     Route: 042
     Dates: start: 20060112
  12. VYTORIN [Concomitant]
     Dosage: 10/40 DAILY
     Route: 048
  13. EPINEPHRINE [Concomitant]
     Dosage: 1MG
     Route: 042
     Dates: start: 20060116, end: 20060116
  14. MUCOMYST [Concomitant]
     Dosage: 600 MG TWICE DAILY X 4 DOSES
     Route: 048
     Dates: start: 20060112
  15. INSULIN [INSULIN] [Concomitant]
     Dosage: 20 UNITS IN MORNING, 15 UNITS IN EVENING
     Route: 058
  16. ATENOLOL [Concomitant]
     Dosage: 50 MG DAILY
     Route: 048
  17. NORVASC [Concomitant]
     Dosage: 10 MG DAILY
     Route: 048

REACTIONS (12)
  - FEAR [None]
  - INJURY [None]
  - ANXIETY [None]
  - PAIN [None]
  - UNEVALUABLE EVENT [None]
  - RENAL FAILURE [None]
  - RENAL IMPAIRMENT [None]
  - RENAL INJURY [None]
  - DEATH [None]
  - EMOTIONAL DISTRESS [None]
  - STRESS [None]
  - ANHEDONIA [None]
